FAERS Safety Report 10219176 (Version 1)
Quarter: 2014Q2

REPORT INFORMATION
  Report Type: Spontaneous
  Country: DE (occurrence: DE)
  Receive Date: 20140605
  Receipt Date: 20140605
  Transmission Date: 20141212
  Serious: Yes (Other)
  Sender: FDA-Public Use
  Company Number: GXKR2014DE002160

PATIENT
  Sex: 0

DRUGS (11)
  1. MIRTAZAPINE [Suspect]
     Route: 048
     Dates: start: 20120702
  2. MIRTAZAPINE [Suspect]
     Route: 048
     Dates: start: 20120703, end: 20120813
  3. MIRTAZAPINE [Suspect]
     Route: 048
     Dates: start: 20120814, end: 20120826
  4. MIRTAZAPINE [Suspect]
     Dosage: 30 MG, UNK
     Route: 048
     Dates: start: 20120827, end: 20120913
  5. MIRTAZAPINE [Suspect]
     Dosage: 15 MG, UNK
     Route: 048
     Dates: start: 20120914, end: 20121101
  6. MIRTAZAPINE [Suspect]
     Dosage: 7.5 MG, UNK
     Route: 048
     Dates: start: 20121102, end: 20121106
  7. OLANZAPINE [Suspect]
     Route: 048
     Dates: start: 20120703, end: 20120715
  8. LORAZEPAM [Concomitant]
     Dosage: 2.5 MG, UNK
     Route: 048
     Dates: start: 20120703, end: 20120710
  9. LORAZEPAM [Concomitant]
     Dosage: 2 MG, UNK
     Route: 048
     Dates: start: 20120711, end: 20120716
  10. LORAZEPAM [Concomitant]
     Dosage: 1 MG, UNK
     Route: 048
     Dates: start: 20120717, end: 20120723
  11. LORAZEPAM [Concomitant]
     Dosage: 0.5 MG, UNK
     Route: 048
     Dates: start: 20120724, end: 20120727

REACTIONS (2)
  - Weight increased [Unknown]
  - Metabolic syndrome [Unknown]
